FAERS Safety Report 12796316 (Version 6)
Quarter: 2017Q4

REPORT INFORMATION
  Report Type: Report from Study
  Country: US (occurrence: US)
  Receive Date: 20160929
  Receipt Date: 20171122
  Transmission Date: 20180320
  Serious: Yes (Other)
  Sender: FDA-Public Use
  Company Number: US-INCYTE CORPORATION-2015IN006507

PATIENT
  Age: 80 Year
  Sex: Female
  Weight: 63.39 kg

DRUGS (24)
  1. MINOCYCLINE [Concomitant]
     Active Substance: MINOCYCLINE\MINOCYCLINE HYDROCHLORIDE
     Indication: POLYCYTHAEMIA VERA
     Dosage: 50 MG, QD
     Dates: start: 20140203, end: 20150624
  2. NAPROXEN. [Concomitant]
     Active Substance: NAPROXEN
     Indication: PRODUCT USED FOR UNKNOWN INDICATION
  3. GLUCOSAMINE + CHONDROITIN          /01430901/ [Concomitant]
     Indication: PRODUCT USED FOR UNKNOWN INDICATION
  4. AMLACTIN [Concomitant]
     Active Substance: AMMONIUM LACTATE
     Indication: PRODUCT USED FOR UNKNOWN INDICATION
  5. CLARITIN [Concomitant]
     Active Substance: LORATADINE
     Indication: PRURITUS
     Dosage: 10 MG, QD
     Dates: start: 20160217
  6. HYDREA [Concomitant]
     Active Substance: HYDROXYUREA
     Indication: POLYCYTHAEMIA VERA
     Dosage: 500 MG, QD
     Dates: start: 20150722, end: 20150902
  7. OSCAL                              /00514701/ [Concomitant]
     Indication: PRODUCT USED FOR UNKNOWN INDICATION
  8. ISOSORBIDE MONONITRATE. [Concomitant]
     Active Substance: ISOSORBIDE MONONITRATE
     Dosage: 30 MG, QD
     Dates: start: 20150130
  9. JAKAFI [Suspect]
     Active Substance: RUXOLITINIB
     Indication: MYELOFIBROSIS
     Dosage: 5 MG, BID
     Route: 048
     Dates: start: 20151113, end: 20160106
  10. HYDREA [Concomitant]
     Active Substance: HYDROXYUREA
     Dosage: 500 MG 3 TIMES PER WEEK
     Dates: start: 20151002, end: 20160210
  11. HYDROXYZINE [Concomitant]
     Active Substance: HYDROXYZINE HYDROCHLORIDE
     Indication: PRURITUS
     Dosage: 10 MG, QD
     Dates: start: 2012, end: 20150624
  12. LISINOPRIL. [Concomitant]
     Active Substance: LISINOPRIL
     Indication: PRODUCT USED FOR UNKNOWN INDICATION
  13. MIRALAX [Concomitant]
     Active Substance: POLYETHYLENE GLYCOL 3350
     Indication: PRODUCT USED FOR UNKNOWN INDICATION
  14. HYDREA [Concomitant]
     Active Substance: HYDROXYUREA
     Dosage: 500 MG, QD
     Dates: start: 20160211, end: 20160217
  15. HYDREA [Concomitant]
     Active Substance: HYDROXYUREA
     Dosage: 1000 MG, 3 TIMES PER WEEK
     Dates: start: 20160218, end: 20160401
  16. HYDREA [Concomitant]
     Active Substance: HYDROXYUREA
     Dosage: 500 MG, QD
     Dates: start: 20160402
  17. BENADRYL [Concomitant]
     Active Substance: DIPHENHYDRAMINE HYDROCHLORIDE
     Indication: PRURITUS
     Dosage: 25 MG, QD
     Dates: start: 20160217
  18. JAKAFI [Suspect]
     Active Substance: RUXOLITINIB
     Dosage: 5 MG, QD
     Route: 048
     Dates: start: 20160106, end: 20160120
  19. JAKAFI [Suspect]
     Active Substance: RUXOLITINIB
     Dosage: 5 MG, QOD
     Route: 048
     Dates: start: 20160121, end: 20160204
  20. ASPIRIN. [Concomitant]
     Active Substance: ASPIRIN
     Indication: POLYCYTHAEMIA VERA
     Dosage: 81 MG, QD
     Dates: start: 20080721
  21. DILTIAZEM. [Concomitant]
     Active Substance: DILTIAZEM
     Indication: HYPERTENSION
     Dosage: 180 MG, QD
     Dates: start: 2014, end: 201602
  22. HYDREA [Concomitant]
     Active Substance: HYDROXYUREA
     Dosage: 500 MG, 4 TIMES PER WEEK
     Dates: start: 20160218, end: 20160401
  23. JAKAFI [Suspect]
     Active Substance: RUXOLITINIB
     Indication: POLYCYTHAEMIA VERA
     Dosage: 10 MG, BID
     Route: 048
     Dates: start: 20140509, end: 20151015
  24. HYDROXYZINE [Concomitant]
     Active Substance: HYDROXYZINE HYDROCHLORIDE
     Dosage: 75 MG, QD
     Dates: start: 20160217, end: 20170428

REACTIONS (11)
  - Sinus node dysfunction [Recovering/Resolving]
  - Anaemia [Unknown]
  - Palpitations [Recovered/Resolved]
  - Skin cancer [Recovered/Resolved]
  - Heart rate irregular [Unknown]
  - Balance disorder [Unknown]
  - Thrombocytopenia [Recovered/Resolved]
  - Fatigue [Recovered/Resolved]
  - Pruritus [Recovering/Resolving]
  - Myelofibrosis [Not Recovered/Not Resolved]
  - Listless [Unknown]

NARRATIVE: CASE EVENT DATE: 201410
